FAERS Safety Report 18255812 (Version 2)
Quarter: 2020Q3

REPORT INFORMATION
  Report Type: Spontaneous
  Country: US (occurrence: US)
  Receive Date: 20200911
  Receipt Date: 20200927
  Transmission Date: 20201103
  Serious: Yes (Other)
  Sender: FDA-Public Use
  Company Number: US-ROCHE-2674145

PATIENT
  Age: 41 Year
  Sex: Female

DRUGS (1)
  1. ERIVEDGE [Suspect]
     Active Substance: VISMODEGIB
     Indication: MALIGNANT MELANOMA
     Route: 048
     Dates: start: 20190422

REACTIONS (3)
  - Fatigue [Unknown]
  - Menstrual disorder [Unknown]
  - Nausea [Unknown]

NARRATIVE: CASE EVENT DATE: 20200904
